FAERS Safety Report 5727355-X (Version None)
Quarter: 2008Q2

REPORT INFORMATION
  Report Type: 
  Country: None (occurrence: None)
  Receive Date: 20080505
  Receipt Date: 20080429
  Transmission Date: 20081010
  Serious: Yes (Other)
  Sender: FDA-Public Use
  Company Number: US-ROCHE-559264

PATIENT
  Age: 54 Year
  Sex: Male

DRUGS (6)
  1. CELLCEPT [Suspect]
     Route: 065
     Dates: start: 20020101
  2. RAPAMUNE [Concomitant]
  3. PREDNISONE [Concomitant]
  4. CELEXA [Concomitant]
  5. VALIUM [Concomitant]
     Dosage: DOSAGE RECEIVED IN THE EVENING.
  6. MULTIVITAMIN NOS [Concomitant]

REACTIONS (4)
  - BLINDNESS [None]
  - GAIT DISTURBANCE [None]
  - NEUROLOGICAL SYMPTOM [None]
  - VISUAL DISTURBANCE [None]
